FAERS Safety Report 8833354 (Version 3)
Quarter: 2015Q4

REPORT INFORMATION
  Report Type: Spontaneous
  Country: US (occurrence: US)
  Receive Date: 20121010
  Receipt Date: 20151110
  Transmission Date: 20160305
  Serious: Yes (Hospitalization)
  Sender: FDA-Public Use
  Company Number: US-ASTRAZENECA-2012SE76324

PATIENT
  Age: 1090 Month
  Sex: Female
  Weight: 65.8 kg

DRUGS (14)
  1. NEXIUM [Suspect]
     Active Substance: ESOMEPRAZOLE MAGNESIUM
     Indication: DYSPEPSIA
     Route: 048
  2. ZETIA [Concomitant]
     Active Substance: EZETIMIBE
     Route: 048
  3. LISINOPRIL. [Suspect]
     Active Substance: LISINOPRIL
     Route: 048
  4. NEXIUM [Suspect]
     Active Substance: ESOMEPRAZOLE MAGNESIUM
     Indication: GASTROOESOPHAGEAL REFLUX DISEASE
     Route: 048
  5. WARFARIN [Concomitant]
     Active Substance: WARFARIN
     Route: 048
  6. METOPROLOL TARTRATE. [Suspect]
     Active Substance: METOPROLOL TARTRATE
     Route: 048
  7. COQ10 [Concomitant]
     Active Substance: UBIDECARENONE
     Route: 048
  8. PRAVASTATIN [Concomitant]
     Active Substance: PRAVASTATIN\PRAVASTATIN SODIUM
     Route: 048
  9. BUMETANIDE. [Concomitant]
     Active Substance: BUMETANIDE
     Route: 048
  10. ATACAND [Suspect]
     Active Substance: CANDESARTAN CILEXETIL
     Indication: HYPERTENSION
     Route: 048
  11. MULTAQ [Concomitant]
     Active Substance: DRONEDARONE
     Route: 048
  12. ECOTRIN [Concomitant]
     Active Substance: ASPIRIN
  13. PREVACHOL [Concomitant]
  14. WARFARIN [Concomitant]
     Active Substance: WARFARIN
     Route: 048

REACTIONS (7)
  - Memory impairment [Unknown]
  - Body height decreased [Unknown]
  - Dyspnoea [Unknown]
  - Cardiac disorder [Unknown]
  - Pain [Unknown]
  - Atrial fibrillation [Unknown]
  - Hearing impaired [Unknown]

NARRATIVE: CASE EVENT DATE: 201402
